FAERS Safety Report 26217833 (Version 1)
Quarter: 2025Q4

REPORT INFORMATION
  Report Type: Spontaneous
  Country: EU (occurrence: EU)
  Receive Date: 20251231
  Receipt Date: 20251231
  Transmission Date: 20260118
  Serious: Yes (Hospitalization)
  Sender: SANDOZ
  Company Number: None

PATIENT
  Age: 61 Year
  Sex: Male
  Weight: 97 kg

DRUGS (7)
  1. AMLODIPINE [Suspect]
     Active Substance: AMLODIPINE BESYLATE
     Indication: Product used for unknown indication
     Dosage: 10 MG, QD
  2. IMATINIB [Suspect]
     Active Substance: IMATINIB
     Indication: Gastrointestinal stromal tumour
     Dosage: 200 MG, QD (IMATINIB BASE)
     Dates: start: 202506
  3. NEBIVOLOL [Suspect]
     Active Substance: NEBIVOLOL
     Indication: Prophylaxis
     Dosage: 5 MG, QD
  4. PERINDOPRIL [Suspect]
     Active Substance: PERINDOPRIL
     Indication: Product used for unknown indication
     Dosage: 8 MG, QD
  5. TEDIZOLID [Suspect]
     Active Substance: TEDIZOLID
     Indication: Device related infection
     Dosage: 200 MG, QD (TEDIZOLIDE (PHOSPHATE DE)
     Dates: start: 202510
  6. INNOHEP [Suspect]
     Active Substance: TINZAPARIN SODIUM
     Indication: Prophylaxis
     Dosage: 18000 INTERNATIONAL UNIT, QD
  7. MELATONIN [Suspect]
     Active Substance: MELATONIN
     Indication: Product used for unknown indication
     Dosage: 2 MG, QD

REACTIONS (1)
  - Inappropriate antidiuretic hormone secretion [Not Recovered/Not Resolved]

NARRATIVE: CASE EVENT DATE: 20251201
